FAERS Safety Report 16647517 (Version 1)
Quarter: 2019Q3

REPORT INFORMATION
  Report Type: Spontaneous
  Country: US (occurrence: US)
  Receive Date: 20190729
  Receipt Date: 20190729
  Transmission Date: 20191004
  Serious: Yes (Life-Threatening, Other)
  Sender: FDA-Public Use
  Company Number: None

PATIENT
  Age: 69 Year
  Sex: Female
  Weight: 58.05 kg

DRUGS (16)
  1. MULTIVITAMIN [Concomitant]
     Active Substance: VITAMINS
  2. ALBUTEROL INHALER PRN [Concomitant]
  3. PLANT STEROLS [Concomitant]
  4. ALBUTEROL NEBULIZER PRN [Concomitant]
  5. ZETIA [Concomitant]
     Active Substance: EZETIMIBE
  6. FAMOTIDINE PRN [Concomitant]
  7. ACEBUTELOL 200MG [Concomitant]
  8. VITAMIN D [Concomitant]
     Active Substance: VITAMIN D NOS
  9. EOVIST [Suspect]
     Active Substance: GADOXETATE DISODIUM
     Indication: NUCLEAR MAGNETIC RESONANCE IMAGING
     Dosage: ?          OTHER FREQUENCY:ONCE;?
     Route: 040
     Dates: start: 20190726, end: 20190726
  10. FISH OIL 2GRAMS [Concomitant]
  11. COQ10 [Concomitant]
     Active Substance: UBIDECARENONE
  12. ASPIRIN 81MG [Concomitant]
     Active Substance: ASPIRIN
  13. FEXOFENADINE PRN [Concomitant]
  14. LINZESS 72MCG [Concomitant]
  15. VITAMIN B12 [Concomitant]
     Active Substance: CYANOCOBALAMIN
  16. PREDNISONE PRN [Concomitant]

REACTIONS (14)
  - Dyspnoea [None]
  - Bundle branch block left [None]
  - Tremor [None]
  - Body temperature increased [None]
  - Nausea [None]
  - Bronchospasm [None]
  - Condition aggravated [None]
  - Muscle spasms [None]
  - QRS axis abnormal [None]
  - Sensation of foreign body [None]
  - Retching [None]
  - Neurological symptom [None]
  - Hypotension [None]
  - Extrasystoles [None]

NARRATIVE: CASE EVENT DATE: 20190726
